FAERS Safety Report 23290571 (Version 1)
Quarter: 2023Q4

REPORT INFORMATION
  Report Type: Spontaneous
  Country: US (occurrence: US)
  Receive Date: 20231213
  Receipt Date: 20231213
  Transmission Date: 20240110
  Serious: No
  Sender: FDA-Public Use
  Company Number: US-PADAGIS-2023PAD01701

PATIENT

DRUGS (1)
  1. ESTRADIOL VAGINAL [Suspect]
     Active Substance: ESTRADIOL
     Indication: Vulvovaginal dryness
     Dosage: 1 G, 2 TIMES WEEKLY
     Route: 065
     Dates: start: 20231124

REACTIONS (2)
  - Prescribed underdose [Unknown]
  - Product communication issue [Unknown]

NARRATIVE: CASE EVENT DATE: 20231117
